FAERS Safety Report 4703709-5 (Version None)
Quarter: 2005Q2

REPORT INFORMATION
  Report Type: 
  Country: None (occurrence: None)
  Receive Date: 20050628
  Receipt Date: 20050610
  Transmission Date: 20051028
  Serious: Yes (Other)
  Sender: FDA-Public Use
  Company Number: USA0506100255

PATIENT
  Age: 78 Year
  Sex: Female

DRUGS (11)
  1. FORTEO [Suspect]
     Indication: OSTEOPOROSIS
     Dates: start: 20040501
  2. COUMADIN [Concomitant]
  3. CARDIZEM [Concomitant]
  4. PHENERGAN [Concomitant]
  5. PROMAZINE HCL [Concomitant]
  6. PROTONIX [Concomitant]
  7. VICODIN [Concomitant]
  8. XANAX [Concomitant]
  9. EFFEXOR XR [Concomitant]
  10. MULTI-VITAMIN [Concomitant]
  11. CALCIUM CITRATE [Concomitant]

REACTIONS (8)
  - ASTHENIA [None]
  - BLOOD IRON DECREASED [None]
  - FATIGUE [None]
  - HOT FLUSH [None]
  - HYPERSOMNIA [None]
  - PHARMACEUTICAL PRODUCT COMPLAINT [None]
  - RECTAL HAEMORRHAGE [None]
  - VAGINAL HAEMORRHAGE [None]
